FAERS Safety Report 5123176-X (Version None)
Quarter: 2006Q4

REPORT INFORMATION
  Report Type: 
  Country: None (occurrence: None)
  Receive Date: 20061005
  Receipt Date: 20060922
  Transmission Date: 20070319
  Serious: Yes (Hospitalization, Other)
  Sender: FDA-Public Use
  Company Number: 2006057342

PATIENT
  Age: 64 Year
  Sex: Male

DRUGS (8)
  1. CELEBREX [Suspect]
     Indication: ARTHRITIS
     Dosage: 400 MG (200 M G, 2 IN 1 D), ORAL
     Route: 048
     Dates: start: 19990101, end: 20040801
  2. ASPIRIN [Concomitant]
  3. ZOCOR [Concomitant]
  4. ANTI-DIABETICS (ANTI-DIABETICS) [Concomitant]
  5. GLUCOPHAGE [Concomitant]
  6. GLYBURIDE [Concomitant]
  7. LOTREL (AMLODIPIN, BENAZEPRIL HYDROCHLORIDE) [Concomitant]
  8. LOPRESSOR [Concomitant]

REACTIONS (9)
  - ACCELERATED HYPERTENSION [None]
  - ASTHENIA [None]
  - BALANCE DISORDER [None]
  - CAROTID ARTERY OCCLUSION [None]
  - CORONARY ARTERY OCCLUSION [None]
  - DIABETES MELLITUS [None]
  - MYOCARDIAL INFARCTION [None]
  - NEPHROLITHIASIS [None]
  - PLEURAL EFFUSION [None]
